FAERS Safety Report 16612078 (Version 1)
Quarter: 2019Q3

REPORT INFORMATION
  Report Type: Report from Study
  Country: IT (occurrence: IT)
  Receive Date: 20190722
  Receipt Date: 20190722
  Transmission Date: 20191004
  Serious: Yes (Other)
  Sender: FDA-Public Use
  Company Number: PHHY2019IT167768

PATIENT
  Sex: Male

DRUGS (24)
  1. COLECALCIFEROL [Concomitant]
     Active Substance: CHOLECALCIFEROL
     Indication: VITAMIN D DEFICIENCY
     Dosage: 10000 OT, UNK
     Route: 048
     Dates: start: 20190307
  2. EPOETIN ALFA [Concomitant]
     Active Substance: ERYTHROPOIETIN
     Indication: ANAEMIA
     Dosage: 40 OT, UNK
     Route: 058
     Dates: start: 20190121, end: 20190304
  3. MANIDIPINA [Concomitant]
     Indication: HYPERTENSION
     Dosage: 1 OT, UNK
     Route: 048
     Dates: start: 20100615
  4. DESAMETASONE [Concomitant]
     Active Substance: DEXAMETHASONE
     Indication: PAIN
     Dosage: 4 OT, UNK
     Route: 030
     Dates: start: 20190121, end: 20190512
  5. PARACETAMOLO [Concomitant]
     Active Substance: ACETAMINOPHEN
     Dosage: 1000 OT, UNK
     Route: 048
     Dates: start: 20190318, end: 20190604
  6. CIANOCOBALAMINA [Concomitant]
     Indication: ANAEMIA
     Dosage: 1000 OT, UNK
     Route: 030
     Dates: start: 20190110, end: 20190317
  7. EPOETIN ALFA [Concomitant]
     Active Substance: ERYTHROPOIETIN
     Dosage: 40 OT, UNK
     Route: 058
     Dates: start: 20190513
  8. FENTANYL. [Concomitant]
     Active Substance: FENTANYL
     Indication: PAIN
     Dosage: 25 OT, UNK
     Route: 062
     Dates: start: 20190121
  9. CALCIUM [Concomitant]
     Active Substance: CALCIUM
     Indication: CALCIUM DEFICIENCY
     Dosage: 1000 OT, UNK
     Route: 048
     Dates: start: 20190210, end: 20190512
  10. PARACETAMOLO [Concomitant]
     Active Substance: ACETAMINOPHEN
     Indication: PAIN
     Dosage: 1000 OT, UNK
     Route: 048
     Dates: start: 20190121, end: 20190316
  11. TRAMETINIB [Suspect]
     Active Substance: TRAMETINIB
     Dosage: 2 OT, UNK
     Route: 065
     Dates: start: 20190513, end: 20190624
  12. TAFINLAR [Suspect]
     Active Substance: DABRAFENIB MESYLATE
     Dosage: 300 OT, UNK
     Route: 065
     Dates: start: 20190513, end: 20190624
  13. COLECALCIFEROL [Concomitant]
     Active Substance: CHOLECALCIFEROL
     Indication: HYPOCALCAEMIA
  14. DENOSUMAB [Concomitant]
     Active Substance: DENOSUMAB
     Indication: METASTASES TO BONE
     Dosage: 120 OT, UNK
     Route: 058
     Dates: start: 20190210
  15. ESOMEPRAZOLO [Concomitant]
     Active Substance: ESOMEPRAZOLE
     Indication: PROPHYLAXIS
     Dosage: 20 OT, UNK
     Route: 048
     Dates: start: 20100615
  16. TRAMETINIB [Suspect]
     Active Substance: TRAMETINIB
     Indication: MALIGNANT MELANOMA
     Dosage: 2 OT, UNK
     Route: 065
     Dates: start: 20190121, end: 20190506
  17. FENTANIL [Concomitant]
     Active Substance: FENTANYL
     Indication: PAIN
     Dosage: 100 OT, UNK
     Route: 048
     Dates: start: 20190121, end: 20190210
  18. TRIPTORELINA [Concomitant]
     Indication: PROSTATE CANCER
     Dosage: 3.75 OT, UNK
     Route: 030
     Dates: start: 20181106
  19. TAFINLAR [Suspect]
     Active Substance: DABRAFENIB MESYLATE
     Indication: MALIGNANT MELANOMA
     Dosage: 300 OT, UNK
     Route: 065
     Dates: start: 20190121, end: 20190506
  20. ABIRATERONE. [Concomitant]
     Active Substance: ABIRATERONE ACETATE
     Indication: PROSTATE CANCER
     Dosage: 250 OT, UNK
     Route: 048
     Dates: start: 20181106
  21. PREGABALIN. [Concomitant]
     Active Substance: PREGABALIN
     Indication: PAIN
     Dosage: 75 OT, UNK
     Route: 048
     Dates: start: 20190121
  22. DL-LYSINI ACETYLSALICYLAS [Concomitant]
     Indication: HYPERTENSION
     Dosage: 75 OT, UNK
     Route: 048
     Dates: start: 20100615
  23. COLECALCIFEROL [Concomitant]
     Active Substance: CHOLECALCIFEROL
     Indication: PROPHYLAXIS
     Dosage: 50 OT, UNK
     Route: 048
     Dates: start: 20190210, end: 20190306
  24. PREDNISONE. [Concomitant]
     Active Substance: PREDNISONE
     Indication: PAIN
     Dosage: 25 OT, UNK
     Route: 048
     Dates: start: 20190506

REACTIONS (6)
  - Back pain [Recovering/Resolving]
  - Leukopenia [Recovered/Resolved]
  - Neutropenia [Recovered/Resolved]
  - Vomiting [Recovered/Resolved]
  - Asthenia [Recovering/Resolving]
  - Anaemia [Recovered/Resolved]

NARRATIVE: CASE EVENT DATE: 20190205
